FAERS Safety Report 5259030-2 (Version None)
Quarter: 2007Q1

REPORT INFORMATION
  Report Type: 
  Country: None (occurrence: None)
  Receive Date: 20070305
  Receipt Date: 20070226
  Transmission Date: 20070707
  Serious: Yes (Other)
  Sender: FDA-Public Use
  Company Number: 13446190

PATIENT
  Sex: Male
  Weight: 102 kg

DRUGS (17)
  1. EMSAM [Suspect]
     Indication: DEPRESSION
     Dosage: 15 MILLIGRAM, 1/24 HOUR TD
     Route: 062
     Dates: start: 20060101
  2. SYNTHROID [Concomitant]
  3. PRILOSEC [Concomitant]
  4. ROCALTROL [Concomitant]
  5. STARLIX [Concomitant]
  6. METFORMIN HCL [Concomitant]
  7. GLIPIZIDE [Concomitant]
  8. ATENOLOL [Concomitant]
  9. ALLOPURINOL [Concomitant]
  10. KEFLEX [Concomitant]
  11. CYCLOBENZAPRINE HCL [Concomitant]
  12. VITAMIN B-12 [Concomitant]
  13. ASPIRIN [Concomitant]
  14. FLUTICASONE PROPIONATE [Concomitant]
  15. TYLENOL [Concomitant]
  16. AMINOGUANIDINE [Concomitant]
  17. FLOMAX [Concomitant]

REACTIONS (10)
  - APPLICATION SITE RASH [None]
  - CONVULSION [None]
  - DEPRESSED MOOD [None]
  - DIZZINESS [None]
  - DYSKINESIA [None]
  - FALL [None]
  - HYPOTENSION [None]
  - PRURITUS [None]
  - RASH MACULAR [None]
  - WEIGHT DECREASED [None]
